FAERS Safety Report 7235281-2 (Version None)
Quarter: 2011Q1

REPORT INFORMATION
  Report Type: 
  Country: None (occurrence: None)
  Receive Date: 20110111
  Receipt Date: 20110104
  Transmission Date: 20110831
  Serious: Yes (Other)
  Sender: FDA-Public Use
  Company Number: 2011SP000137

PATIENT
  Age: 2 Year
  Sex: Female
  Weight: 11 kg

DRUGS (2)
  1. CELESTONE [Suspect]
     Indication: NASOPHARYNGITIS
     Dosage: 120 GTT; TID; PO
     Route: 048
     Dates: start: 20101215, end: 20101216
  2. CELESTONE [Suspect]
     Indication: COUGH
     Dosage: 120 GTT; TID; PO
     Route: 048
     Dates: start: 20101215, end: 20101216

REACTIONS (8)
  - ERYTHEMA [None]
  - DRUG LABEL CONFUSION [None]
  - INCORRECT DOSE ADMINISTERED [None]
  - RESTLESSNESS [None]
  - INSOMNIA [None]
  - WEIGHT INCREASED [None]
  - AGITATION [None]
  - MEDICATION ERROR [None]
